FAERS Safety Report 4411075-8 (Version None)
Quarter: 2004Q2

REPORT INFORMATION
  Report Type: 
  Country: None (occurrence: None)
  Receive Date: 20040630
  Receipt Date: 20040416
  Transmission Date: 20050107
  Serious: No
  Sender: FDA-Public Use
  Company Number: 04P-163-0257999-00

PATIENT
  Age: 78 Year
  Sex: Male
  Weight: 84.369 kg

DRUGS (9)
  1. HUMIRA [Suspect]
     Indication: ARTHRITIS
     Dosage: 40 MG, 1 IN 2 WK, SUBCUTANEOUS
     Route: 058
     Dates: start: 20040408
  2. GLIBENCLAMIDE [Concomitant]
  3. TAMSULOSIN HYDROCHLORIDE [Concomitant]
  4. FUROSEMIDE [Concomitant]
  5. QUINAPRIL HYDROCHLORIDE [Concomitant]
  6. PREDNISONE [Concomitant]
  7. SERETIDE MITE [Concomitant]
  8. FOLIC ACID [Concomitant]
  9. METFORMIN HCL [Concomitant]

REACTIONS (1)
  - MEDICATION ERROR [None]
